FAERS Safety Report 12769313 (Version 1)
Quarter: 2016Q3

REPORT INFORMATION
  Report Type: Spontaneous
  Country: US (occurrence: US)
  Receive Date: 20160921
  Receipt Date: 20160921
  Transmission Date: 20161109
  Serious: Yes (Hospitalization, Other)
  Sender: FDA-Public Use
  Company Number: US-GLAXOSMITHKLINE-US2016137906

PATIENT
  Sex: Female

DRUGS (13)
  1. LASIX [Concomitant]
     Active Substance: FUROSEMIDE
  2. BENZONATATE. [Concomitant]
     Active Substance: BENZONATATE
  3. AMLODIPINE [Concomitant]
     Active Substance: AMLODIPINE BESYLATE
  4. ASPIRIN. [Concomitant]
     Active Substance: ASPIRIN
  5. LIDOCAINE. [Concomitant]
     Active Substance: LIDOCAINE
  6. LANTUS [Concomitant]
     Active Substance: INSULIN GLARGINE
  7. BISOPROLOL [Concomitant]
     Active Substance: BISOPROLOL
  8. VENTOLIN HFA [Suspect]
     Active Substance: ALBUTEROL SULFATE
     Indication: DYSPNOEA
     Dosage: 2 PUFF(S), QD
     Route: 055
     Dates: start: 2012
  9. GABAPENTIN. [Suspect]
     Active Substance: GABAPENTIN
     Indication: NEUROPATHY PERIPHERAL
     Dosage: UNK
  10. PRILOSEC [Concomitant]
     Active Substance: OMEPRAZOLE MAGNESIUM
  11. LOMOTIL [Concomitant]
     Active Substance: ATROPINE SULFATE\DIPHENOXYLATE HYDROCHLORIDE
  12. PRAVASTATIN. [Concomitant]
     Active Substance: PRAVASTATIN
  13. AMITRIPTYLINE [Concomitant]
     Active Substance: AMITRIPTYLINE

REACTIONS (13)
  - Infection [Recovered/Resolved]
  - Lung neoplasm malignant [Unknown]
  - Diabetes mellitus [Not Recovered/Not Resolved]
  - Product cleaning inadequate [Unknown]
  - Lung cancer metastatic [Unknown]
  - Swelling [Recovering/Resolving]
  - Rectal cancer [Unknown]
  - Hepatic lesion [Recovered/Resolved]
  - Neuropathy peripheral [Not Recovered/Not Resolved]
  - Rib fracture [Recovered/Resolved]
  - Pneumothorax [Recovered/Resolved]
  - Nephrolithiasis [Recovered/Resolved]
  - Dehydration [Recovered/Resolved]

NARRATIVE: CASE EVENT DATE: 2013
